FAERS Safety Report 16083629 (Version 1)
Quarter: 2019Q1

REPORT INFORMATION
  Report Type: Spontaneous
  Country: PT (occurrence: PT)
  Receive Date: 20190318
  Receipt Date: 20190318
  Transmission Date: 20190418
  Serious: Yes (Disabling)
  Sender: FDA-Public Use
  Company Number: PT-ROCHE-2222273

PATIENT
  Age: 69 Year
  Sex: Male

DRUGS (1)
  1. TECENTRIQ [Suspect]
     Active Substance: ATEZOLIZUMAB
     Indication: LUNG ADENOCARCINOMA
     Route: 042
     Dates: start: 20180105

REACTIONS (2)
  - Dizziness [Not Recovered/Not Resolved]
  - Blindness transient [Not Recovered/Not Resolved]

NARRATIVE: CASE EVENT DATE: 201805
